FAERS Safety Report 15001468 (Version 1)
Quarter: 2018Q2

REPORT INFORMATION
  Report Type: Spontaneous
  Country: FR (occurrence: FR)
  Receive Date: 20180612
  Receipt Date: 20180612
  Transmission Date: 20180711
  Serious: Yes (Hospitalization)
  Sender: FDA-Public Use
  Company Number: FR-TEVA-2018-FR-904803

PATIENT
  Age: 49 Year
  Sex: Male
  Weight: 73 kg

DRUGS (17)
  1. ROCEPHINE [Suspect]
     Active Substance: CEFTRIAXONE SODIUM
     Dates: start: 20180129, end: 20180209
  2. CORTANCYL [Concomitant]
     Active Substance: PREDNISONE
     Dosage: 10 MILLIGRAM DAILY;
  3. MAG 2 [Concomitant]
     Active Substance: MAGNESIUM CHLORIDE
     Route: 048
  4. ALPRAZOLAM. [Concomitant]
     Active Substance: ALPRAZOLAM
     Route: 048
  5. VALACICLOVIR [Concomitant]
     Active Substance: VALACYCLOVIR HYDROCHLORIDE
     Dosage: 1000 MILLIGRAM DAILY;
  6. AZITHROMYCIN ANHYDROUS. [Suspect]
     Active Substance: AZITHROMYCIN ANHYDROUS
     Route: 048
     Dates: start: 20180126, end: 20180209
  7. ORACILLINE [Concomitant]
     Active Substance: PENICILLIN V
     Dosage: 2000000 IU (INTERNATIONAL UNIT) DAILY;
     Route: 048
  8. CALCIUM VITAMINE D3 CALCIMED [Concomitant]
     Route: 048
  9. NEORAL [Concomitant]
     Active Substance: CYCLOSPORINE
     Dosage: 250 MILLIGRAM DAILY;
     Route: 048
  10. CLAFORAN [Suspect]
     Active Substance: CEFOTAXIME SODIUM
     Dates: start: 20180126, end: 20180129
  11. NOXAFIL [Concomitant]
     Active Substance: POSACONAZOLE
     Dosage: 200 MILLIGRAM DAILY;
     Route: 048
  12. MOVICOL [Concomitant]
     Active Substance: POLYETHYLENE GLYCOL 3350\POTASSIUM CHLORIDE\SODIUM BICARBONATE\SODIUM CHLORIDE
     Route: 065
  13. 10WELLVONE [Concomitant]
     Dosage: 10 ML DAILY;
     Route: 048
  14. ENTOCORT [Concomitant]
     Active Substance: BUDESONIDE
     Dosage: 3 MILLIGRAM DAILY;
     Route: 048
  15. BISOCE [Concomitant]
     Active Substance: BISOPROLOL
     Dosage: 3.75 MILLIGRAM DAILY;
     Route: 048
  16. PANTOPRAZOLE [Concomitant]
     Active Substance: PANTOPRAZOLE
     Dosage: 20 MILLIGRAM DAILY;
     Route: 048
  17. RAMIPRIL. [Concomitant]
     Active Substance: RAMIPRIL
     Dosage: 2.5 MILLIGRAM DAILY;

REACTIONS (1)
  - Rash papular [Not Recovered/Not Resolved]

NARRATIVE: CASE EVENT DATE: 20180209
